FAERS Safety Report 19249875 (Version 2)
Quarter: 2021Q2

REPORT INFORMATION
  Report Type: Report from Study
  Country: None (occurrence: US)
  Receive Date: 20210513
  Receipt Date: 20210612
  Transmission Date: 20210717
  Serious: Yes (Hospitalization, Other)
  Sender: FDA-Public Use
  Company Number: US-ABBVIE-21K-163-3894905-00

PATIENT
  Age: 50 Year
  Sex: Female
  Weight: 86.26 kg

DRUGS (16)
  1. LUNESTA [Concomitant]
     Active Substance: ESZOPICLONE
     Indication: SLEEP DISORDER
  2. DOXEPIN [Concomitant]
     Active Substance: DOXEPIN
     Indication: SLEEP DISORDER
  3. DULOXETINE. [Concomitant]
     Active Substance: DULOXETINE
     Indication: DEPRESSION
  4. HYDROXYZINE [Concomitant]
     Active Substance: HYDROXYZINE HYDROCHLORIDE
     Indication: ANXIETY
  5. HUMIRA [Suspect]
     Active Substance: ADALIMUMAB
     Indication: ANKYLOSING SPONDYLITIS
     Dosage: CF
     Route: 058
     Dates: start: 20201013
  6. NAPROXEN. [Concomitant]
     Active Substance: NAPROXEN
     Indication: INFLAMMATION
  7. LUNESTA [Concomitant]
     Active Substance: ESZOPICLONE
     Indication: INSOMNIA
  8. HUMIRA [Suspect]
     Active Substance: ADALIMUMAB
     Dosage: CF
     Route: 058
     Dates: start: 20210304, end: 2021
  9. HUMIRA [Suspect]
     Active Substance: ADALIMUMAB
     Dosage: CF
     Route: 058
     Dates: end: 20210121
  10. DOXEPIN [Concomitant]
     Active Substance: DOXEPIN
     Indication: DEPRESSION
  11. HYDROXYZINE [Concomitant]
     Active Substance: HYDROXYZINE HYDROCHLORIDE
     Indication: HYPERSENSITIVITY
  12. PROPRANOLOL [Concomitant]
     Active Substance: PROPRANOLOL HYDROCHLORIDE
     Indication: MIGRAINE
  13. DOXEPIN [Concomitant]
     Active Substance: DOXEPIN
     Indication: ANXIETY
  14. GABAPENTIN. [Concomitant]
     Active Substance: GABAPENTIN
     Indication: NEURALGIA
  15. ALPRAZOLAM. [Concomitant]
     Active Substance: ALPRAZOLAM
     Indication: ANXIETY
  16. ALPRAZOLAM. [Concomitant]
     Active Substance: ALPRAZOLAM
     Indication: PANIC ATTACK

REACTIONS (18)
  - Ankylosing spondylitis [Recovered/Resolved]
  - Ankylosing spondylitis [Recovered/Resolved]
  - Joint swelling [Unknown]
  - Joint range of motion decreased [Unknown]
  - Therapeutic response shortened [Unknown]
  - Discomfort [Unknown]
  - Tenderness [Unknown]
  - COVID-19 [Recovered/Resolved]
  - Mobility decreased [Unknown]
  - Inflammation [Not Recovered/Not Resolved]
  - Stress [Unknown]
  - Pain [Not Recovered/Not Resolved]
  - Peripheral swelling [Not Recovered/Not Resolved]
  - Loss of personal independence in daily activities [Unknown]
  - Dysstasia [Unknown]
  - Pain in extremity [Unknown]
  - Nasopharyngitis [Recovering/Resolving]
  - Hypersensitivity [Unknown]

NARRATIVE: CASE EVENT DATE: 2021
